FAERS Safety Report 23736433 (Version 1)
Quarter: 2024Q2

REPORT INFORMATION
  Report Type: Other
  Country: IT (occurrence: IT)
  Receive Date: 20240412
  Receipt Date: 20240412
  Transmission Date: 20240716
  Serious: Yes (Other)
  Sender: FDA-Public Use
  Company Number: IT-MACLEODS PHARMACEUTICALS US LTD-MAC2024046843

PATIENT

DRUGS (17)
  1. AMLODIPINE [Suspect]
     Active Substance: AMLODIPINE BESYLATE
     Indication: Hypertension
     Dosage: UNK
     Route: 065
  2. PANTOPRAZOLE SODIUM [Suspect]
     Active Substance: PANTOPRAZOLE SODIUM
     Indication: Prophylaxis
     Dosage: 40 MILLIGRAM, QD
     Route: 065
  3. PREGABALIN [Suspect]
     Active Substance: PREGABALIN
     Indication: Product used for unknown indication
     Dosage: UNK
     Route: 065
  4. ATORVASTATIN [Suspect]
     Active Substance: ATORVASTATIN
     Indication: Product used for unknown indication
     Dosage: 40 MILLIGRAM, QD
     Route: 065
  5. ACETYLCYSTEINE [Suspect]
     Active Substance: ACETYLCYSTEINE
     Indication: Product used for unknown indication
     Dosage: 100 MILLIGRAM, TID (100 MG (MILLIGRAM), THREE TIMES A DAY)
     Route: 065
  6. BISOPROLOL [Suspect]
     Active Substance: BISOPROLOL\BISOPROLOL FUMARATE
     Indication: Hypertension
     Dosage: UNK
     Route: 065
  7. METHYLPREDNISOLONE [Suspect]
     Active Substance: METHYLPREDNISOLONE
     Indication: Product used for unknown indication
     Dosage: 10 MILLIGRAM, QOD (10 MG (MILLIGRAM) ON ODD DAYS)
     Route: 065
  8. CALCIUM CHLORIDE [Suspect]
     Active Substance: CALCIUM CHLORIDE
     Indication: Mineral supplementation
     Dosage: UNK, Q3D
     Route: 042
     Dates: start: 20230829, end: 20230831
  9. CALCIUM CHLORIDE [Suspect]
     Active Substance: CALCIUM CHLORIDE
     Dosage: UNK
     Route: 042
     Dates: start: 20230830, end: 20230831
  10. NOREPINEPHRINE [Suspect]
     Active Substance: NOREPINEPHRINE\NOREPINEPHRINE BITARTRATE
     Indication: Cardiovascular disorder
     Dosage: 0.19 MICROGRAM/KILOGRAM (0.19 MCG/KG/MIN)
     Route: 065
  11. NOREPINEPHRINE [Suspect]
     Active Substance: NOREPINEPHRINE\NOREPINEPHRINE BITARTRATE
     Dosage: 19 MICROGRAM/KILOGRAM
     Route: 065
  12. CALCIUM CHLORIDE\DEXTROSE\MAGNESIUM CHLORIDE\SODIUM CHLORIDE\SODIUM LA [Suspect]
     Active Substance: CALCIUM CHLORIDE\DEXTROSE\DEXTROSE MONOHYDRATE\MAGNESIUM CHLORIDE\SODIUM CHLORIDE\SODIUM LACTATE
     Indication: Product used for unknown indication
     Dosage: 1500 MILLILITER, Q.H. (1500 ML/H (REINFUSION 500 ML/H)
     Route: 065
  13. LEVOTHYROXINE SODIUM [Suspect]
     Active Substance: LEVOTHYROXINE SODIUM
     Indication: Product used for unknown indication
     Dosage: UNK
     Route: 065
  14. NADROPARIN CALCIUM [Suspect]
     Active Substance: NADROPARIN CALCIUM
     Indication: Thrombosis prophylaxis
     Dosage: 4000 INTERNATIONAL UNIT
     Route: 058
  15. REGIOCIT [Suspect]
     Active Substance: SODIUM CHLORIDE\SODIUM CITRATE
     Indication: Anticoagulant therapy
     Dosage: UNK
     Route: 065
     Dates: start: 20230817, end: 20230831
  16. ASPIRIN [Suspect]
     Active Substance: ASPIRIN
     Indication: Product used for unknown indication
     Dosage: 100 MILLIGRAM, QD
     Route: 065
  17. HEPARIN [Concomitant]
     Active Substance: HEPARIN SODIUM
     Indication: Anticoagulant therapy
     Dosage: UNK (10000 UI, 3 TIMES A WEEK )
     Route: 065
     Dates: end: 20230817

REACTIONS (2)
  - Hyperlactacidaemia [Unknown]
  - Hypercalcaemia [Recovered/Resolved]

NARRATIVE: CASE EVENT DATE: 20230831
